FAERS Safety Report 12876337 (Version 1)
Quarter: 2016Q4

REPORT INFORMATION
  Report Type: Spontaneous
  Country: US (occurrence: US)
  Receive Date: 20161024
  Receipt Date: 20161024
  Transmission Date: 20170207
  Serious: Yes (Hospitalization)
  Sender: FDA-Public Use
  Company Number: US-FERRINGPH-2016FE05385

PATIENT

DRUGS (1)
  1. FIRMAGON [Suspect]
     Active Substance: DEGARELIX ACETATE
     Indication: PROSTATE CANCER
     Dosage: 80 MG, MONTHLY
     Route: 058
     Dates: start: 201605

REACTIONS (11)
  - Injection site irritation [Unknown]
  - Injection site nodule [Unknown]
  - Back pain [Unknown]
  - Dehydration [Unknown]
  - Confusional state [Unknown]
  - Headache [Unknown]
  - Injection site nodule [Unknown]
  - Nausea [Unknown]
  - Product colour issue [Unknown]
  - Dry mouth [Unknown]
  - Injection site pain [Unknown]

NARRATIVE: CASE EVENT DATE: 2016
